FAERS Safety Report 9721496 (Version 2)
Quarter: 2013Q4

REPORT INFORMATION
  Report Type: Spontaneous
  Country: AU (occurrence: AU)
  Receive Date: 20131130
  Receipt Date: 20131211
  Transmission Date: 20140711
  Serious: No
  Sender: FDA-Public Use
  Company Number: AU-AMGEN-AUSSP2013083181

PATIENT
  Sex: Female

DRUGS (1)
  1. PROLIA [Suspect]
     Indication: MUSCULOSKELETAL DISCOMFORT
     Route: 065

REACTIONS (6)
  - Musculoskeletal stiffness [Unknown]
  - Chills [Unknown]
  - Pyrexia [Unknown]
  - Dysstasia [Unknown]
  - Pain [Unknown]
  - Musculoskeletal pain [Unknown]
